FAERS Safety Report 11929640 (Version 1)
Quarter: 2016Q1

REPORT INFORMATION
  Report Type: Spontaneous
  Country: CA (occurrence: CA)
  Receive Date: 20160120
  Receipt Date: 20160120
  Transmission Date: 20160526
  Serious: Yes (Death)
  Sender: FDA-Public Use
  Company Number: CA-TEVA-627264ACC

PATIENT
  Age: 46 Year
  Sex: Female

DRUGS (8)
  1. APO-ESOMEPRAZOLE [Concomitant]
     Active Substance: ESOMEPRAZOLE
  2. QUETIAPINE [Suspect]
     Active Substance: QUETIAPINE
     Indication: BORDERLINE PERSONALITY DISORDER
  3. CLONAZEPAM. [Concomitant]
     Active Substance: CLONAZEPAM
  4. CITALOPRAM [Suspect]
     Active Substance: CITALOPRAM HYDROBROMIDE
     Indication: ANXIETY
  5. QUETIAPINE [Suspect]
     Active Substance: QUETIAPINE
     Indication: ANXIETY
     Dosage: 50 MILLIGRAM DAILY;
     Route: 065
  6. FERROUS SULFATE [Concomitant]
     Active Substance: FERROUS SULFATE\FERROUS SULFATE, DRIED
  7. VITAMIN D [Concomitant]
     Active Substance: CHOLECALCIFEROL
  8. CITALOPRAM [Suspect]
     Active Substance: CITALOPRAM HYDROBROMIDE
     Indication: BORDERLINE PERSONALITY DISORDER
     Route: 065

REACTIONS (4)
  - Antidepressant drug level above therapeutic [Fatal]
  - Blood ethanol increased [Fatal]
  - Death [Fatal]
  - Antipsychotic drug level above therapeutic [Fatal]
